FAERS Safety Report 18070341 (Version 1)
Quarter: 2020Q3

REPORT INFORMATION
  Report Type: Spontaneous
  Country: GB (occurrence: GB)
  Receive Date: 20200727
  Receipt Date: 20200727
  Transmission Date: 20201103
  Serious: Yes (Hospitalization, Disabling)
  Sender: FDA-Public Use
  Company Number: GB-TEVA-2020-GB-1805112

PATIENT
  Age: 83 Year
  Sex: Male

DRUGS (5)
  1. ACETYLSALICYLIC ACID [Concomitant]
     Active Substance: ASPIRIN
  2. ATORVASTATIN [Concomitant]
     Active Substance: ATORVASTATIN
  3. GLICLAZIDE [Concomitant]
     Active Substance: GLICLAZIDE
  4. PIOGLITAZONE. [Suspect]
     Active Substance: PIOGLITAZONE
     Indication: DIABETES MELLITUS
     Dosage: 30 MG
     Route: 048
     Dates: start: 20190523
  5. LINAGLIPTIN [Concomitant]
     Active Substance: LINAGLIPTIN

REACTIONS (1)
  - Femoral neck fracture [Recovered/Resolved with Sequelae]

NARRATIVE: CASE EVENT DATE: 20200612
